FAERS Safety Report 7666978-8 (Version None)
Quarter: 2011Q3

REPORT INFORMATION
  Report Type: 
  Country: None (occurrence: None)
  Receive Date: 20110806
  Receipt Date: 20110425
  Transmission Date: 20111222
  Serious: No
  Sender: FDA-Public Use
  Company Number: US-ABBOTT-11P-163-0721601-00

PATIENT
  Sex: Female
  Weight: 93.978 kg

DRUGS (5)
  1. ASPIRIN [Concomitant]
     Indication: PROPHYLAXIS
  2. LOVAZA [Concomitant]
     Indication: BLOOD CHOLESTEROL INCREASED
  3. MULTI-VITAMIN [Concomitant]
     Indication: VITAMIN SUPPLEMENTATION
  4. LISINOPRIL [Concomitant]
     Indication: HYPERTENSION
  5. NIASPAN [Suspect]
     Indication: BLOOD TRIGLYCERIDES INCREASED
     Dates: start: 20110415

REACTIONS (1)
  - FLUSHING [None]
